FAERS Safety Report 4492124-8 (Version None)
Quarter: 2004Q3

REPORT INFORMATION
  Report Type: 
  Country: None (occurrence: None)
  Receive Date: 20040924
  Receipt Date: 20031222
  Transmission Date: 20050211
  Serious: No
  Sender: FDA-Public Use
  Company Number: 03P-163-0245592-00

PATIENT
  Age: 47 Year
  Sex: Female

DRUGS (13)
  1. KALETRA [Suspect]
     Indication: HIV INFECTION
     Dosage: 3 CAPSULES, 2 IN 1 D, ORAL
     Route: 048
     Dates: start: 20030527, end: 20031111
  2. STAVUDINE [Suspect]
     Indication: HIV INFECTION
     Dosage: 75 MG, 1 IN 1 D, ORAL
     Route: 048
     Dates: start: 20030527, end: 20031111
  3. EMTRICITABINE [Suspect]
     Indication: HIV INFECTION
     Dosage: 200 MG, 1 IN 1 D, ORAL
     Route: 048
     Dates: start: 20030527, end: 20031111
  4. LACTULOSE [Concomitant]
  5. METOCLOPRAMIDE [Concomitant]
  6. CLINDAMYCIN HYDROCHLORIDE [Concomitant]
  7. CLARITHROMCYIN [Concomitant]
  8. ETHAMBUTOL HCL [Concomitant]
  9. PENTAMIDINE [Concomitant]
  10. PARACETAMOL [Concomitant]
  11. DIMETICONE, ACTIVATED [Concomitant]
  12. WARFARIN SODIUM [Concomitant]
  13. OXYCOCET [Concomitant]

REACTIONS (4)
  - ALANINE AMINOTRANSFERASE INCREASED [None]
  - BLOOD ALKALINE PHOSPHATASE INCREASED [None]
  - DEEP VEIN THROMBOSIS [None]
  - GAMMA-GLUTAMYLTRANSFERASE INCREASED [None]
